FAERS Safety Report 7084863-X (Version None)
Quarter: 2010Q4

REPORT INFORMATION
  Report Type: 
  Country: None (occurrence: None)
  Receive Date: 20101105
  Receipt Date: 20101025
  Transmission Date: 20110411
  Serious: Yes (Hospitalization)
  Sender: FDA-Public Use
  Company Number: NL-TEVA-253390ISR

PATIENT
  Sex: Male

DRUGS (6)
  1. PREDNISOLONE [Suspect]
     Indication: PROSTATE CANCER METASTATIC
     Route: 048
     Dates: start: 20091221
  2. ABIRATERONE ACETATE/PLACEBO - BLINDED [Suspect]
     Indication: PROSTATE CANCER METASTATIC
     Route: 048
     Dates: start: 20091221, end: 20100718
  3. METFORMIN [Concomitant]
     Route: 048
     Dates: start: 20090709
  4. CELECOXIB [Concomitant]
     Indication: BACK PAIN
     Route: 048
     Dates: start: 20090801
  5. CELECOXIB [Concomitant]
     Indication: METASTASES TO BONE
  6. TEMAZEPAM [Concomitant]
     Indication: INITIAL INSOMNIA
     Route: 048
     Dates: start: 20091218

REACTIONS (3)
  - ASPARTATE AMINOTRANSFERASE INCREASED [None]
  - COAGULOPATHY [None]
  - HAEMATURIA [None]
